FAERS Safety Report 7078854-2 (Version None)
Quarter: 2010Q4

REPORT INFORMATION
  Report Type: 
  Country: None (occurrence: None)
  Receive Date: 20101021
  Receipt Date: 20101011
  Transmission Date: 20110411
  Serious: Yes (Other)
  Sender: FDA-Public Use
  Company Number: 020183

PATIENT
  Sex: Female

DRUGS (1)
  1. VIMPAT [Suspect]
     Indication: EPILEPSY
     Dosage: (ORAL); (RESTARTED, ORAL)
     Route: 048
     Dates: start: 20100101, end: 20100101

REACTIONS (2)
  - ACUTE PSYCHOSIS [None]
  - PERSECUTORY DELUSION [None]
